FAERS Safety Report 6537618-6 (Version None)
Quarter: 2010Q1

REPORT INFORMATION
  Report Type: 
  Country: None (occurrence: None)
  Receive Date: 20100110
  Receipt Date: 20091224
  Transmission Date: 20100710
  Serious: Yes (Hospitalization)
  Sender: FDA-Public Use
  Company Number: DSA_42256_2009

PATIENT
  Age: 83 Year

DRUGS (4)
  1. ENALAPRIL MALEATE [Suspect]
     Indication: MYOCARDIAL INFARCTION
     Dosage: (5 MG BID ORAL), (5 MG, IN MORNING ORAL), (5 MG,  AT BEDTIME ORAL)
     Route: 048
  2. IMDUR [Suspect]
     Dosage: (DF)
  3. ASPIRIN [Concomitant]
  4. FUROSEMIDE [Concomitant]

REACTIONS (5)
  - BLOOD PRESSURE SYSTOLIC DECREASED [None]
  - DIZZINESS [None]
  - HEART RATE DECREASED [None]
  - LOSS OF CONSCIOUSNESS [None]
  - ORTHOSTATIC HYPOTENSION [None]
